FAERS Safety Report 17202566 (Version 1)
Quarter: 2019Q4

REPORT INFORMATION
  Report Type: Spontaneous
  Country: TN (occurrence: TN)
  Receive Date: 20191226
  Receipt Date: 20191226
  Transmission Date: 20200122
  Serious: Yes (Life-Threatening)
  Sender: FDA-Public Use
  Company Number: TN-B.I. PHARMACEUTICALS,INC./RIDGEFIELD-2019-BI-122143

PATIENT
  Age: 65 Year
  Sex: Male

DRUGS (6)
  1. CONCOR [Concomitant]
     Active Substance: BISOPROLOL FUMARATE
     Indication: PRODUCT USED FOR UNKNOWN INDICATION
     Dosage: DOSAGE STRENGTH: 5/5
     Route: 065
  2. JARDIANCE [Suspect]
     Active Substance: EMPAGLIFLOZIN
     Indication: TYPE 2 DIABETES MELLITUS
     Route: 048
     Dates: start: 2017, end: 20191120
  3. CO-APROVEL [Concomitant]
     Active Substance: HYDROCHLOROTHIAZIDE\IRBESARTAN
     Indication: HYPERTENSION
     Dosage: DOSAGE STRENGTH:  300/12.5
     Route: 065
     Dates: start: 2010
  4. JARDIANCE [Suspect]
     Active Substance: EMPAGLIFLOZIN
     Indication: OBESITY
  5. CILACAR [Concomitant]
     Indication: HYPERTENSION
     Dosage: STRENGTH: 5
     Route: 065
     Dates: start: 2010
  6. ATOR 10 [Concomitant]
     Indication: DYSLIPIDAEMIA
     Dosage: STRENGTH: 10
     Route: 065
     Dates: start: 2010

REACTIONS (1)
  - Euglycaemic diabetic ketoacidosis [Recovered/Resolved]

NARRATIVE: CASE EVENT DATE: 20191126
